FAERS Safety Report 14797703 (Version 13)
Quarter: 2018Q3

REPORT INFORMATION
  Report Type: Report from Study
  Country: DE (occurrence: DE)
  Receive Date: 20180424
  Receipt Date: 20180920
  Transmission Date: 20181010
  Serious: Yes (Death, Hospitalization, Other)
  Sender: FDA-Public Use
  Company Number: DE-BRISTOL-MYERS SQUIBB COMPANY-BMS-2017-082992

PATIENT
  Age: 77 Year
  Sex: Male

DRUGS (6)
  1. MCP STADA [Concomitant]
     Indication: PROPHYLAXIS
     Dosage: 30 MG, UNK
     Route: 065
     Dates: start: 20180101, end: 20180115
  2. SEVREDOL [Concomitant]
     Active Substance: MORPHINE
     Indication: MALIGNANT NEOPLASM PROGRESSION
     Dosage: 10 MG, UNK
     Route: 065
     Dates: start: 20180104, end: 20180115
  3. LYRICA [Concomitant]
     Active Substance: PREGABALIN
     Indication: MALIGNANT NEOPLASM PROGRESSION
     Dosage: 50 MG, UNK
     Route: 065
     Dates: start: 20180104, end: 20180115
  4. METAMIZOL                          /06276701/ [Concomitant]
     Active Substance: METAMIZOLE
     Indication: MALIGNANT NEOPLASM PROGRESSION
     Dosage: 500 MG, PRN
     Route: 065
     Dates: start: 20180104, end: 20180115
  5. PARACODEINE [Concomitant]
     Indication: PRODUCT USED FOR UNKNOWN INDICATION
     Dosage: 60 UNK, UNK
     Route: 065
     Dates: start: 20180104, end: 20180115
  6. NIVOLUMAB [Suspect]
     Active Substance: NIVOLUMAB
     Indication: RENAL CELL CARCINOMA
     Dosage: 3 MG/KG, Q2WK
     Route: 042
     Dates: start: 20170713, end: 20171005

REACTIONS (9)
  - Pleural effusion [Recovered/Resolved]
  - Haemothorax [Unknown]
  - Chills [Not Recovered/Not Resolved]
  - Inguinal hernia [Not Recovered/Not Resolved]
  - Pathological fracture [Not Recovered/Not Resolved]
  - Rash [Unknown]
  - Malignant neoplasm progression [Fatal]
  - Lung abscess [Recovered/Resolved with Sequelae]
  - Hot flush [Recovered/Resolved]

NARRATIVE: CASE EVENT DATE: 20170713
